FAERS Safety Report 24318920 (Version 1)
Quarter: 2024Q3

REPORT INFORMATION
  Report Type: Spontaneous
  Country: US (occurrence: US)
  Receive Date: 20240913
  Receipt Date: 20240913
  Transmission Date: 20241016
  Serious: Yes (Hospitalization)
  Sender: MERCK
  Company Number: US-009507513-2409USA004864

PATIENT
  Sex: Male

DRUGS (1)
  1. KEYTRUDA [Suspect]
     Active Substance: PEMBROLIZUMAB
     Indication: Hodgkin^s disease
     Dosage: 200 MILLIGRAM, EVERY 21 DAYS (Q3W); QUANTITY:1
     Route: 042

REACTIONS (3)
  - Chills [Unknown]
  - Pyrexia [Unknown]
  - Asthenia [Unknown]
